FAERS Safety Report 13082725 (Version 1)
Quarter: 2017Q1

REPORT INFORMATION
  Report Type: Other
  Country: CA (occurrence: CA)
  Receive Date: 20170103
  Receipt Date: 20170103
  Transmission Date: 20170428
  Serious: Yes (Other)
  Sender: FDA-Public Use
  Company Number: CA-APOTEX-2016AP016143

PATIENT
  Age: 60 Year
  Sex: Male

DRUGS (2)
  1. LITHIUM. [Concomitant]
     Active Substance: LITHIUM
     Indication: PRODUCT USED FOR UNKNOWN INDICATION
     Dosage: 300 MG, TID
     Route: 065
  2. APO-SELEGILINE [Suspect]
     Active Substance: SELEGILINE HYDROCHLORIDE
     Indication: PARKINSONISM
     Dosage: 5 MG, QD
     Route: 065

REACTIONS (3)
  - Parkinsonism [Unknown]
  - Hyperchlorhydria [Unknown]
  - Unmasking of previously unidentified disease [Unknown]
